FAERS Safety Report 7765346-8 (Version None)
Quarter: 2011Q3

REPORT INFORMATION
  Report Type: 
  Country: None (occurrence: None)
  Receive Date: 20110921
  Receipt Date: 20110912
  Transmission Date: 20111222
  Serious: Yes (Hospitalization)
  Sender: FDA-Public Use
  Company Number: JP-EISAI INC-E3810-04939-SPO-JP

PATIENT
  Age: 64 Year
  Sex: Male

DRUGS (7)
  1. RABEPRAZOLE SODIUM [Suspect]
     Indication: GASTRIC ULCER
     Route: 048
  2. REPTOR [Concomitant]
     Route: 048
  3. ZOLPIDEM [Concomitant]
     Route: 048
  4. DELUX-C [Concomitant]
     Route: 048
  5. ROHYPNOL [Concomitant]
     Route: 048
  6. GASMOTIN [Concomitant]
     Route: 048
  7. ALLOPURINOL [Concomitant]
     Route: 048

REACTIONS (2)
  - LYMPHADENOPATHY [None]
  - HEPATIC FUNCTION ABNORMAL [None]
